FAERS Safety Report 23137833 (Version 3)
Quarter: 2024Q4

REPORT INFORMATION
  Report Type: Spontaneous
  Country: JP (occurrence: JP)
  Receive Date: 20231102
  Receipt Date: 20241028
  Transmission Date: 20250115
  Serious: Yes (Other)
  Sender: GLAXOSMITHKLINE
  Company Number: JP-GLAXOSMITHKLINE-JP2023JPN150494

PATIENT

DRUGS (1)
  1. LAMOTRIGINE [Suspect]
     Active Substance: LAMOTRIGINE
     Indication: Idiopathic partial epilepsy
     Dosage: UNK

REACTIONS (3)
  - Glomerulonephritis membranous [Unknown]
  - Nephrotic syndrome [Unknown]
  - Proteinuria [Unknown]
